FAERS Safety Report 8165749-6 (Version None)
Quarter: 2012Q1

REPORT INFORMATION
  Report Type: 
  Country: None (occurrence: None)
  Receive Date: 20120227
  Receipt Date: 20110222
  Transmission Date: 20120608
  Serious: No
  Sender: FDA-Public Use
  Company Number: US-MYLANLABS-2011S1001023

PATIENT
  Sex: Male
  Weight: 58.06 kg

DRUGS (1)
  1. AMNESTEEM [Suspect]
     Indication: ACNE

REACTIONS (2)
  - DEPRESSION [None]
  - PARENT-CHILD PROBLEM [None]
